FAERS Safety Report 9831101 (Version 2)
Quarter: 2014Q1

REPORT INFORMATION
  Report Type: Spontaneous
  Country: US (occurrence: US)
  Receive Date: 20140120
  Receipt Date: 20140202
  Transmission Date: 20141002
  Serious: Yes (Other)
  Sender: FDA-Public Use
  Company Number: US-AMGEN-USASP2014003166

PATIENT
  Age: 54 Year
  Sex: Male

DRUGS (1)
  1. EPOGEN [Suspect]
     Indication: NEPHROGENIC ANAEMIA
     Dosage: UNK
     Route: 065
     Dates: start: 20120904

REACTIONS (3)
  - Haemoglobin decreased [Not Recovered/Not Resolved]
  - Haematochezia [Unknown]
  - Aplasia pure red cell [Unknown]
